FAERS Safety Report 15731044 (Version 1)
Quarter: 2018Q4

REPORT INFORMATION
  Report Type: Spontaneous
  Country: US (occurrence: US)
  Receive Date: 20181217
  Receipt Date: 20181217
  Transmission Date: 20190205
  Serious: Yes (Other)
  Sender: FDA-Public Use
  Company Number: None

PATIENT
  Sex: Female

DRUGS (5)
  1. GLIPIZIDE TAB 10MG [Concomitant]
     Dates: start: 20181031
  2. TIMOLOL MAL SOL 0.5%OP [Concomitant]
     Dates: start: 20180905
  3. XELJANZ XR [Suspect]
     Active Substance: TOFACITINIB CITRATE
     Indication: PRODUCT USED FOR UNKNOWN INDICATION
     Route: 048
  4. NITROFURANTIN CAP 100MG [Concomitant]
     Dates: start: 20181206
  5. AZITHROMYCIN TAB 500MG [Concomitant]
     Dates: start: 20181114

REACTIONS (3)
  - Condition aggravated [None]
  - Vocal cord disorder [None]
  - Musculoskeletal stiffness [None]
